FAERS Safety Report 12805507 (Version 1)
Quarter: 2016Q4

REPORT INFORMATION
  Report Type: Spontaneous
  Country: US (occurrence: US)
  Receive Date: 20161004
  Receipt Date: 20161004
  Transmission Date: 20170207
  Serious: No
  Sender: FDA-Public Use
  Company Number: US-BAYER-2016-191792

PATIENT
  Sex: Female

DRUGS (1)
  1. MIRALAX [Suspect]
     Active Substance: POLYETHYLENE GLYCOL 3350
     Dosage: UNK

REACTIONS (6)
  - Fatigue [Unknown]
  - Product use issue [Unknown]
  - Insomnia [Unknown]
  - Product quality issue [Unknown]
  - Movement disorder [Unknown]
  - Feeling abnormal [Unknown]
